FAERS Safety Report 8548626-8 (Version None)
Quarter: 2012Q3

REPORT INFORMATION
  Report Type: 
  Country: None (occurrence: None)
  Receive Date: 20120730
  Receipt Date: 20120720
  Transmission Date: 20120928
  Serious: Yes (Hospitalization)
  Sender: FDA-Public Use
  Company Number: US-BAYER-201028480NA

PATIENT
  Age: 32 Year
  Sex: Female
  Weight: 75 kg

DRUGS (9)
  1. LISINOPRIL [Concomitant]
  2. MICROGESTIN FE 1.5/30 [Concomitant]
  3. YASMIN [Suspect]
     Indication: CONTRACEPTION
     Route: 048
     Dates: start: 20060101, end: 20100101
  4. MAXALT [Concomitant]
  5. ACETAMINOPHEN [Concomitant]
     Indication: HEADACHE
     Dosage: 1 TABLET AS NEEDED
  6. ANTIBIOTICS [Concomitant]
     Indication: INFECTION
  7. CELEXA [Concomitant]
     Indication: POSTPARTUM DEPRESSION
     Dosage: 40 MG, DAILY
     Route: 048
  8. VICODIN [Concomitant]
     Indication: PAIN
  9. RESTORIL [Concomitant]
     Indication: SLEEP DISORDER THERAPY
     Dosage: 15 MG, HS AS NEEDED
     Route: 048

REACTIONS (4)
  - PAIN [None]
  - PULMONARY EMBOLISM [None]
  - CHOLELITHIASIS [None]
  - CHOLECYSTECTOMY [None]
